FAERS Safety Report 15222322 (Version 2)
Quarter: 2018Q3

REPORT INFORMATION
  Report Type: Spontaneous
  Country: US (occurrence: US)
  Receive Date: 20180731
  Receipt Date: 20180803
  Transmission Date: 20181010
  Serious: Yes (Hospitalization)
  Sender: FDA-Public Use
  Company Number: US-FRESENIUS MEDICAL CARE RENAL THERAPIES GROUP-FMC-1807-001369

PATIENT
  Age: 64 Year
  Sex: Male

DRUGS (8)
  1. SEVELAMER [Concomitant]
     Active Substance: SEVELAMER
  2. ASPIRIN. [Concomitant]
     Active Substance: ASPIRIN
  3. DELFLEX WITH DEXTROSE 2.5% LOW MAGNESIUM LOW CALCIUM [Suspect]
     Active Substance: CALCIUM CHLORIDE\DEXTROSE\MAGNESIUM CHLORIDE\SODIUM CHLORIDE\SODIUM LACTATE
     Indication: END STAGE RENAL DISEASE
     Route: 033
  4. CINACALCET. [Concomitant]
     Active Substance: CINACALCET
  5. AMIODARONE [Concomitant]
     Active Substance: AMIODARONE
  6. CARVEDILOL. [Concomitant]
     Active Substance: CARVEDILOL
  7. LOSARTAN. [Concomitant]
     Active Substance: LOSARTAN
  8. ERGOCALCIFEROL. [Concomitant]
     Active Substance: ERGOCALCIFEROL

REACTIONS (4)
  - Haemoglobin decreased [Recovered/Resolved]
  - Peritonitis bacterial [Recovered/Resolved]
  - Gastrointestinal haemorrhage [Recovered/Resolved]
  - Hypotension [Recovered/Resolved]

NARRATIVE: CASE EVENT DATE: 20180704
